FAERS Safety Report 6319783-9 (Version None)
Quarter: 2009Q3

REPORT INFORMATION
  Report Type: 
  Country: None (occurrence: None)
  Receive Date: 20090822
  Receipt Date: 20080924
  Transmission Date: 20100115
  Serious: No
  Sender: FDA-Public Use
  Company Number: US-ABBOTT-08P-163-0478154-00

PATIENT
  Sex: Female

DRUGS (6)
  1. NIASPAN [Suspect]
     Indication: BLOOD CHOLESTEROL INCREASED
     Dosage: QHS
     Route: 048
     Dates: start: 20080912
  2. NIASPAN [Suspect]
     Indication: LOW DENSITY LIPOPROTEIN INCREASED
  3. NIASPAN [Suspect]
     Indication: BLOOD TRIGLYCERIDES INCREASED
  4. ESTRADIOL [Concomitant]
     Indication: ENDOMETRIOSIS
     Route: 048
     Dates: start: 20030101
  5. LO-DOSE ASPIRIN [Concomitant]
     Indication: DRUG USE FOR UNKNOWN INDICATION
     Route: 048
     Dates: start: 20080912
  6. UNKNOWN ANTI-INFLAMMATORY [Concomitant]
     Indication: INTERVERTEBRAL DISC DEGENERATION
     Route: 048

REACTIONS (5)
  - ABDOMINAL PAIN [None]
  - FLUSHING [None]
  - HEADACHE [None]
  - PRURITUS [None]
  - RASH [None]
